FAERS Safety Report 4313528-X (Version None)
Quarter: 2004Q1

REPORT INFORMATION
  Report Type: 
  Country: None (occurrence: None)
  Receive Date: 20040308
  Receipt Date: 20040105
  Transmission Date: 20041129
  Serious: Yes (Death)
  Sender: FDA-Public Use
  Company Number: FR-GLAXOSMITHKLINE-B0319116A

PATIENT
  Age: 1 Day
  Sex: Female

DRUGS (3)
  1. RETROVIR [Suspect]
     Indication: ANTIVIRAL PROPHYLAXIS
     Dosage: 7MG FOUR TIMES PER DAY
     Route: 048
     Dates: start: 20031204, end: 20031204
  2. VIRACEPT [Suspect]
     Indication: HIV INFECTION
     Dates: start: 20031101
  3. COMBIVIR [Suspect]
     Indication: HIV INFECTION
     Dates: start: 20031101

REACTIONS (3)
  - ASPHYXIA [None]
  - DEATH NEONATAL [None]
  - DRUG EXPOSURE DURING PREGNANCY [None]
